FAERS Safety Report 9408313 (Version 1)
Quarter: 2013Q3

REPORT INFORMATION
  Report Type: Spontaneous
  Country: GB (occurrence: None)
  Receive Date: 20130716
  Receipt Date: 20130716
  Transmission Date: 20140515
  Serious: Yes (Life-Threatening, Hospitalization, Other)
  Sender: FDA-Public Use
  Company Number: GER/UKI/13/0031425

PATIENT
  Age: 28 Year
  Sex: Female
  Weight: 42.7 kg

DRUGS (7)
  1. QUETIAPINE (QUETIAPINE) [Suspect]
     Indication: NIGHTMARE
     Route: 048
     Dates: start: 20130612, end: 20130703
  2. CALCEOS (LEKOVIT CA) [Concomitant]
  3. FERROUS SULPHATE (FERROUS SULFATE) [Concomitant]
  4. MIRTAZAPINE (MIRTAZAPINE) [Concomitant]
  5. OMEPRAZOLE (OMEPRAZOLE) [Concomitant]
  6. PENICILLIN V (PHENOXYMETHYLPENICILLIN) [Concomitant]
  7. SANDO-K (POTASSIUM-SANDOZ) [Concomitant]

REACTIONS (7)
  - Blood electrolytes abnormal [None]
  - Electrocardiogram QT prolonged [None]
  - Electrocardiogram T wave inversion [None]
  - Blood potassium decreased [None]
  - Loss of consciousness [None]
  - Dizziness [None]
  - Presyncope [None]
